FAERS Safety Report 4481789-2 (Version None)
Quarter: 2004Q4

REPORT INFORMATION
  Report Type: 
  Country: None (occurrence: None)
  Receive Date: 20041021
  Receipt Date: 20041018
  Transmission Date: 20050328
  Serious: Yes (Death)
  Sender: FDA-Public Use
  Company Number: US-MERCK-0410USA02586

PATIENT
  Age: 54 Year
  Sex: Male

DRUGS (1)
  1. VIOXX [Suspect]
     Indication: ROTATOR CUFF SYNDROME
     Route: 048
     Dates: start: 20010101

REACTIONS (1)
  - MYOCARDIAL INFARCTION [None]
